FAERS Safety Report 5247412-4 (Version None)
Quarter: 2007Q1

REPORT INFORMATION
  Report Type: 
  Country: None (occurrence: None)
  Receive Date: 20070223
  Receipt Date: 20070223
  Transmission Date: 20070707
  Serious: Yes (Hospitalization, Other)
  Sender: FDA-Public Use
  Company Number: None

PATIENT
  Sex: Female
  Weight: 41.7309 kg

DRUGS (1)
  1. EMSAM [Suspect]
     Indication: DEPRESSION
     Dates: start: 20061011, end: 20070110

REACTIONS (9)
  - CHRONIC OBSTRUCTIVE PULMONARY DISEASE [None]
  - PNEUMONIA [None]
  - POSTNASAL DRIP [None]
  - PURULENCE [None]
  - RESPIRATORY DISORDER [None]
  - RESPIRATORY FAILURE [None]
  - RHINORRHOEA [None]
  - SINUS HEADACHE [None]
  - SINUSITIS [None]
